FAERS Safety Report 4856266-7 (Version None)
Quarter: 2005Q4

REPORT INFORMATION
  Report Type: 
  Country: None (occurrence: None)
  Receive Date: 20051219
  Receipt Date: 20051005
  Transmission Date: 20060501
  Serious: Yes (Hospitalization)
  Sender: FDA-Public Use
  Company Number: US-BOEHRINGER INGELHEIM PHARMACEUTICALS, INC.-2005-BP-17746BP

PATIENT
  Age: 91 Year
  Sex: Female

DRUGS (5)
  1. MOBIC [Suspect]
     Indication: ARTHRITIS
     Route: 048
     Dates: start: 20050401, end: 20050925
  2. PROTONIX [Concomitant]
     Indication: STOMACH DISCOMFORT
  3. PROPRANOLOL [Concomitant]
     Indication: TREMOR
  4. SYNTHROID [Concomitant]
     Indication: THYROID DISORDER
  5. OXEPAM [Concomitant]
     Indication: SLEEP DISORDER

REACTIONS (2)
  - DIVERTICULUM [None]
  - GASTROINTESTINAL HAEMORRHAGE [None]
